FAERS Safety Report 5885964-1 (Version None)
Quarter: 2008Q3

REPORT INFORMATION
  Report Type: 
  Country: None (occurrence: None)
  Receive Date: 20080917
  Receipt Date: 20080904
  Transmission Date: 20090109
  Serious: Yes (Hospitalization)
  Sender: FDA-Public Use
  Company Number: BR-BAYER-200818048LA

PATIENT
  Age: 40 Year
  Sex: Female
  Weight: 67 kg

DRUGS (3)
  1. MIRENA [Suspect]
     Indication: MENOPAUSE
     Route: 015
     Dates: start: 20061205, end: 20080625
  2. LIVIAL [Concomitant]
     Indication: MENOPAUSE
     Route: 048
     Dates: start: 20080811
  3. ZOLADEX [Concomitant]
     Indication: ENDOMETRIOSIS
     Route: 065
     Dates: start: 20080601, end: 20080601

REACTIONS (2)
  - ENDOMETRIOSIS [None]
  - INTRA-UTERINE CONTRACEPTIVE DEVICE EXPELLED [None]
